FAERS Safety Report 8934508 (Version 1)
Quarter: 2012Q4

REPORT INFORMATION
  Report Type: 
  Country: US (occurrence: US)
  Receive Date: 20121129
  Receipt Date: 20121129
  Transmission Date: 20130627
  Serious: No
  Sender: FDA-Public Use
  Company Number: US-GLAXOSMITHKLINE-A0961159A

PATIENT
  Age: 72 Year
  Sex: Female

DRUGS (10)
  1. FLOVENT [Suspect]
     Indication: CHRONIC OBSTRUCTIVE PULMONARY DISEASE
     Dosage: 1PUFF Twice per day
     Route: 055
     Dates: start: 20120101, end: 20120105
  2. SYNTHROID [Concomitant]
  3. NEXIUM [Concomitant]
  4. SPIRIVA [Concomitant]
  5. PROVENTIL [Concomitant]
  6. CARAFATE [Concomitant]
  7. GAS-X [Concomitant]
  8. LIPITOR [Concomitant]
  9. O2 [Concomitant]
  10. C-PAP [Concomitant]

REACTIONS (3)
  - Abdominal pain [Recovering/Resolving]
  - Diarrhoea [Unknown]
  - Arthralgia [Unknown]
